FAERS Safety Report 6986726-4 (Version None)
Quarter: 2010Q3

REPORT INFORMATION
  Report Type: 
  Country: None (occurrence: None)
  Receive Date: 20100915
  Receipt Date: 20090730
  Transmission Date: 20110219
  Serious: No
  Sender: FDA-Public Use
  Company Number: US-WYE-H10401709

PATIENT
  Sex: Female
  Weight: 56.75 kg

DRUGS (4)
  1. PRISTIQ [Suspect]
     Indication: DEPRESSION
     Dosage: 50 MG/100 MG ALTERNATING DAILY
     Route: 048
     Dates: start: 20090501
  2. METOPROLOL TARTRATE [Concomitant]
  3. LUNESTA [Concomitant]
  4. KLONOPIN [Concomitant]

REACTIONS (1)
  - VITILIGO [None]
